FAERS Safety Report 9938681 (Version 4)
Quarter: 2014Q1

REPORT INFORMATION
  Report Type: Report from Study
  Country: CA (occurrence: CA)
  Receive Date: 20140303
  Receipt Date: 20140331
  Transmission Date: 20141002
  Serious: Yes (Hospitalization)
  Sender: FDA-Public Use
  Company Number: CA-JNJFOC-20140211655

PATIENT
  Age: 61 Year
  Sex: Female
  Weight: 77.1 kg

DRUGS (9)
  1. STELARA [Suspect]
     Indication: CROHN^S DISEASE
     Route: 058
     Dates: start: 20140130
  2. ENTOCORT [Concomitant]
     Route: 048
     Dates: start: 20131114
  3. CALCIUM [Concomitant]
     Route: 048
  4. VITAMIN D [Concomitant]
     Dosage: 200 UI MG
     Route: 048
  5. PANTOLOC [Concomitant]
     Route: 048
  6. PREGABALIN [Concomitant]
     Dosage: HS
     Route: 048
  7. APO-OXAZEPAM [Concomitant]
     Dosage: HS
     Route: 048
  8. PREMARIN [Concomitant]
     Dosage: HS
     Route: 048
  9. VITAMINE E [Concomitant]
     Dosage: 10000 UI
     Route: 048

REACTIONS (11)
  - Nausea [Unknown]
  - Vomiting [Unknown]
  - Headache [Unknown]
  - Pain [Unknown]
  - Migraine [Unknown]
  - Dizziness [Unknown]
  - Weight decreased [Unknown]
  - Pruritus [Unknown]
  - Erythema [Unknown]
  - Off label use [Unknown]
  - Faeces soft [Unknown]
